FAERS Safety Report 11234839 (Version 1)
Quarter: 2015Q2

REPORT INFORMATION
  Report Type: Spontaneous
  Country: US (occurrence: None)
  Receive Date: 20150630
  Receipt Date: 20150630
  Transmission Date: 20150821
  Serious: Yes (Other)
  Sender: FDA-Public Use
  Company Number: ABR_02260_2015

PATIENT
  Age: 73 Year
  Sex: Female
  Weight: 88.45 kg

DRUGS (2)
  1. MAGNESIUM CHLORIDE. [Concomitant]
     Active Substance: MAGNESIUM CHLORIDE
  2. EDARBYCLOR [Suspect]
     Active Substance: AZILSARTAN KAMEDOXOMIL\CHLORTHALIDONE
     Indication: HYPERTENSION
     Dosage: 40/12.5 MG ORAL), 1 DF, QD
     Route: 048
     Dates: start: 2013

REACTIONS (12)
  - Diarrhoea [None]
  - Drug dose omission [None]
  - Increased appetite [None]
  - Quality of life decreased [None]
  - Urinary incontinence [None]
  - Poor quality sleep [None]
  - Dysgeusia [None]
  - Gout [None]
  - Depression [None]
  - Lethargy [None]
  - Ill-defined disorder [None]
  - Asthenia [None]
